FAERS Safety Report 23075033 (Version 3)
Quarter: 2024Q1

REPORT INFORMATION
  Report Type: Report from Study
  Country: CN (occurrence: CN)
  Receive Date: 20231017
  Receipt Date: 20240102
  Transmission Date: 20240410
  Serious: Yes (Other)
  Sender: FDA-Public Use
  Company Number: CN-Eisai-EC-2023-150652

PATIENT
  Age: 49 Year
  Sex: Male
  Weight: 52 kg

DRUGS (6)
  1. LENVATINIB [Suspect]
     Active Substance: LENVATINIB
     Indication: Hepatocellular carcinoma
     Route: 048
     Dates: start: 20230118, end: 20230713
  2. TORIPALIMAB [Suspect]
     Active Substance: TORIPALIMAB
     Indication: Hepatocellular carcinoma
     Dosage: FORM UNKNOWN
     Route: 041
     Dates: start: 20230118, end: 20230621
  3. ENTECAVIR [Concomitant]
     Active Substance: ENTECAVIR
     Dates: start: 20180918
  4. AMLODIPINE BESYLATE [Concomitant]
     Active Substance: AMLODIPINE BESYLATE
     Dates: start: 20230210
  5. CELECOXIB [Concomitant]
     Active Substance: CELECOXIB
     Dates: start: 20230620
  6. MORPHINE HYDROCHLORIDE [Concomitant]
     Active Substance: MORPHINE HYDROCHLORIDE
     Dates: start: 20230620

REACTIONS (3)
  - Alanine aminotransferase increased [Recovered/Resolved]
  - Blood bilirubin increased [Recovering/Resolving]
  - Aspartate aminotransferase increased [Recovering/Resolving]

NARRATIVE: CASE EVENT DATE: 20230719
